FAERS Safety Report 5283070-0 (Version None)
Quarter: 2007Q1

REPORT INFORMATION
  Report Type: 
  Country: None (occurrence: None)
  Receive Date: 20070329
  Receipt Date: 20070329
  Transmission Date: 20070707
  Serious: Yes (Other)
  Sender: FDA-Public Use
  Company Number: None

PATIENT
  Age: 41 Year
  Sex: Male
  Weight: 68.0396 kg

DRUGS (1)
  1. LEVAQUIN [Suspect]
     Indication: SINUSITIS
     Dosage: 500 MG 1 DAILY PO
     Route: 048
     Dates: start: 20070308, end: 20070315

REACTIONS (4)
  - ARTHRALGIA [None]
  - DEHYDRATION [None]
  - PAIN IN EXTREMITY [None]
  - TENDON PAIN [None]
